FAERS Safety Report 9251701 (Version 4)
Quarter: 2014Q2

REPORT INFORMATION
  Report Type: Spontaneous
  Country: US (occurrence: US)
  Receive Date: 20130424
  Receipt Date: 20140401
  Transmission Date: 20141212
  Serious: No
  Sender: FDA-Public Use
  Company Number: US-ASTRAZENECA-2013SE27314

PATIENT
  Age: 74 Year
  Sex: Female
  Weight: 93 kg

DRUGS (25)
  1. NEXIUM [Suspect]
     Indication: GASTROOESOPHAGEAL REFLUX DISEASE
     Route: 048
  2. NEXIUM [Suspect]
     Indication: GASTRIC DISORDER
     Route: 048
  3. NEXIUM [Suspect]
     Indication: GASTROOESOPHAGEAL REFLUX DISEASE
     Route: 048
     Dates: start: 20060607
  4. NEXIUM [Suspect]
     Indication: GASTRIC DISORDER
     Route: 048
     Dates: start: 20060607
  5. NEXIUM [Suspect]
     Indication: GASTROOESOPHAGEAL REFLUX DISEASE
     Route: 048
     Dates: start: 20060707
  6. NEXIUM [Suspect]
     Indication: GASTRIC DISORDER
     Route: 048
     Dates: start: 20060707
  7. PRILOSEC OTC [Suspect]
     Route: 048
  8. PREVACID [Suspect]
     Route: 065
  9. ADVAIR [Concomitant]
     Indication: LUNG DISORDER
  10. ASPIRIN [Concomitant]
     Indication: VASCULAR GRAFT
  11. PROVENTIL [Concomitant]
     Indication: LUNG DISORDER
  12. METOPROLOL [Concomitant]
  13. NITROLINGUAL [Concomitant]
     Indication: CARDIAC DISORDER
  14. TRIAMTERENE [Concomitant]
     Indication: DIZZINESS
     Dates: start: 20061125
  15. MECLIZINE [Concomitant]
  16. COLESTIPOL [Concomitant]
     Indication: BLOOD CHOLESTEROL ABNORMAL
  17. TRICOR [Concomitant]
  18. CRESTOR [Concomitant]
  19. AMBIEN CR [Concomitant]
     Dates: start: 20060116
  20. ACTONEL [Concomitant]
     Dates: start: 20060116
  21. KLOR-CON [Concomitant]
     Dates: start: 20060120
  22. MOBIC [Concomitant]
     Dates: start: 20060227
  23. METOPROLOL TARTRATE [Concomitant]
     Dates: start: 20060201
  24. ZETIA [Concomitant]
  25. WELCHOL [Concomitant]
     Dates: start: 20070818

REACTIONS (11)
  - Osteoporosis [Unknown]
  - Bone density decreased [Unknown]
  - Bone disorder [Unknown]
  - Foot fracture [Unknown]
  - Cataract [Unknown]
  - Arthritis [Unknown]
  - Intervertebral disc degeneration [Unknown]
  - Osteopenia [Unknown]
  - Spinal osteoarthritis [Unknown]
  - Osteoarthritis [Unknown]
  - Meniscal degeneration [Unknown]
